FAERS Safety Report 8580610-0 (Version None)
Quarter: 2012Q3

REPORT INFORMATION
  Report Type: 
  Country: None (occurrence: None)
  Receive Date: 20120809
  Receipt Date: 20120803
  Transmission Date: 20120928
  Serious: Yes (Hospitalization)
  Sender: FDA-Public Use
  Company Number: US-AMGEN-US238286

PATIENT
  Age: 51 Year
  Sex: Female

DRUGS (8)
  1. LISINOPRIL [Concomitant]
     Dosage: 20 MG, QD
     Route: 048
  2. NIFEDIPINE [Concomitant]
     Dosage: 90 MG, QD
     Route: 048
  3. NAPROXEN SODIUM [Concomitant]
     Dosage: UNK UNK, Q6H
     Route: 048
  4. EPOGEN [Concomitant]
     Dosage: 2500 IU, 3 TIMES/WK
     Route: 065
  5. TOPROL-XL [Concomitant]
     Dosage: 100 MG, QD
     Route: 048
  6. CINACALCET HYDROCHLORIDE [Suspect]
     Indication: HYPERPARATHYROIDISM SECONDARY
     Dosage: UNK UNK, QD
     Route: 048
     Dates: start: 20070719
  7. SEVELAMER HCL [Concomitant]
     Dosage: 3200 MG, TID
     Route: 048
  8. LANTHANUM CARBONATE [Concomitant]
     Dosage: 1 G, TID
     Route: 048

REACTIONS (2)
  - HYPERPARATHYROIDISM SECONDARY [None]
  - HYPOCALCAEMIA [None]
